FAERS Safety Report 4335953-3 (Version None)
Quarter: 2004Q2

REPORT INFORMATION
  Report Type: 
  Country: None (occurrence: None)
  Receive Date: 20040406
  Receipt Date: 20040326
  Transmission Date: 20050107
  Serious: Yes (Hospitalization)
  Sender: FDA-Public Use
  Company Number: 04OES007465

PATIENT
  Age: 55 Year
  Sex: Female
  Weight: 55 kg

DRUGS (2)
  1. OESCLIM 50 UG/24 H (17B-ESTRADIOL) PATCH, 50 UG/24H [Suspect]
     Indication: MENOPAUSE
     Dosage: 50 , UG, TWICE/WEEK   TRANSDERMAL
     Route: 062
     Dates: start: 19980101
  2. COLPRONE TAB [Concomitant]

REACTIONS (4)
  - RETINAL TEAR [None]
  - VISION BLURRED [None]
  - VISUAL ACUITY REDUCED [None]
  - VITREOUS FLOATERS [None]
